FAERS Safety Report 7008769-7 (Version None)
Quarter: 2010Q3

REPORT INFORMATION
  Report Type: 
  Country: None (occurrence: None)
  Receive Date: 20100921
  Receipt Date: 20100901
  Transmission Date: 20110219
  Serious: Yes (Hospitalization)
  Sender: FDA-Public Use
  Company Number: APP201000691

PATIENT
  Age: 64 Year
  Sex: Female

DRUGS (4)
  1. METHYLPREDNISOLONE SODIUM SUCCINATE [Suspect]
     Indication: IDIOPATHIC THROMBOCYTOPENIC PURPURA
     Dosage: 20 MG, 3 IN 1 D
  2. HYDROXYCHLOROQUINE SULFATE [Suspect]
     Indication: PRODUCT USED FOR UNKNOWN INDICATION
  3. CEFTAZIDIME [Concomitant]
  4. CLINDAMYCIN [Concomitant]

REACTIONS (8)
  - ALANINE AMINOTRANSFERASE INCREASED [None]
  - BACTERAEMIA [None]
  - BLOOD SODIUM DECREASED [None]
  - LEGIONELLA INFECTION [None]
  - LUNG INFILTRATION [None]
  - NEISSERIA TEST POSITIVE [None]
  - SPUTUM CULTURE POSITIVE [None]
  - STREPTOCOCCUS TEST POSITIVE [None]
